FAERS Safety Report 4356391-3 (Version None)
Quarter: 2004Q2

REPORT INFORMATION
  Report Type: 
  Country: None (occurrence: None)
  Receive Date: 20040511
  Receipt Date: 20040511
  Transmission Date: 20050107
  Serious: Yes (Life-Threatening, Hospitalization)
  Sender: FDA-Public Use
  Company Number: None

PATIENT
  Age: 23 Year
  Sex: Male
  Weight: 63.5036 kg

DRUGS (1)
  1. EPHEDRINE MULTI-ACTION 25 MG EPHEDRINE PROACTIVE LABS INC [Suspect]
     Dosage: OVERDOSE 1500 MG ORAL
     Route: 048

REACTIONS (2)
  - CARDIAC DISORDER [None]
  - CARDIAC ENZYMES INCREASED [None]
